FAERS Safety Report 7668545-9 (Version None)
Quarter: 2011Q3

REPORT INFORMATION
  Report Type: 
  Country: None (occurrence: None)
  Receive Date: 20110803
  Receipt Date: 20110728
  Transmission Date: 20111222
  Serious: Yes (Other)
  Sender: FDA-Public Use
  Company Number: ACO_26097_2011

PATIENT
  Sex: Female

DRUGS (2)
  1. LYRICA [Suspect]
     Indication: PAIN
  2. ZANAFLEX [Suspect]
     Indication: PRODUCT USED FOR UNKNOWN INDICATION
     Dates: start: 20100101

REACTIONS (5)
  - METABOLIC DISORDER [None]
  - LOWER LIMB FRACTURE [None]
  - WEIGHT INCREASED [None]
  - NEUROPATHY PERIPHERAL [None]
  - CHRONIC FATIGUE SYNDROME [None]
